FAERS Safety Report 16220254 (Version 8)
Quarter: 2019Q3

REPORT INFORMATION
  Report Type: Spontaneous
  Country: US (occurrence: US)
  Receive Date: 20190420
  Receipt Date: 20190909
  Transmission Date: 20191004
  Serious: Yes (Congenital Anomaly, Other)
  Sender: FDA-Public Use
  Company Number: PHEH2019US016899

PATIENT
  Sex: Female

DRUGS (1)
  1. ZOFRAN [Suspect]
     Active Substance: ONDANSETRON HYDROCHLORIDE
     Indication: FOETAL EXPOSURE DURING PREGNANCY
     Dosage: MOTHER DOSE: 4 MG, PRN
     Route: 064

REACTIONS (24)
  - Atrial septal defect [Unknown]
  - Chest discomfort [Unknown]
  - Palpitations [Unknown]
  - Left-to-right cardiac shunt [Unknown]
  - Cough [Unknown]
  - Musculoskeletal chest pain [Unknown]
  - Right ventricular hypertrophy [Unknown]
  - Swelling of eyelid [Unknown]
  - Mitral valve incompetence [Unknown]
  - Pulmonary valve incompetence [Unknown]
  - Cardiac murmur [Unknown]
  - Pyrexia [Unknown]
  - Rhinitis allergic [Unknown]
  - Decreased appetite [Unknown]
  - Arthropod sting [Unknown]
  - Dizziness [Unknown]
  - Anomalous pulmonary venous connection [Unknown]
  - Bronchiolitis [Unknown]
  - Abdominal discomfort [Unknown]
  - Cellulitis [Unknown]
  - Foetal exposure during pregnancy [Unknown]
  - Tricuspid valve incompetence [Unknown]
  - Chest pain [Unknown]
  - Upper respiratory tract infection [Unknown]
